FAERS Safety Report 22337572 (Version 1)
Quarter: 2023Q2

REPORT INFORMATION
  Report Type: Spontaneous
  Country: US (occurrence: None)
  Receive Date: 20230518
  Receipt Date: 20230518
  Transmission Date: 20230722
  Serious: No
  Sender: FDA-Public Use
  Company Number: US-ROCHE-3297410

PATIENT
  Sex: Female

DRUGS (6)
  1. ACTEMRA [Suspect]
     Active Substance: TOCILIZUMAB
     Indication: Rheumatoid arthritis
     Dosage: INJECT 162 MG SUBCUTANEOUSLY EVERY WEEK
     Route: 058
  2. ACTEMRA [Suspect]
     Active Substance: TOCILIZUMAB
  3. GABAPENTIN [Concomitant]
     Active Substance: GABAPENTIN
     Dosage: 100 MG AND 400 MG.
  4. OMEPRAZOLE [Concomitant]
     Active Substance: OMEPRAZOLE
  5. PREDNISONE [Concomitant]
     Active Substance: PREDNISONE
  6. TELMISARTAN [Concomitant]
     Active Substance: TELMISARTAN

REACTIONS (5)
  - Blood pressure decreased [Unknown]
  - Feeling jittery [Unknown]
  - Dyspnoea [Unknown]
  - Pain [Unknown]
  - Headache [Unknown]
